FAERS Safety Report 23462243 (Version 1)
Quarter: 2024Q1

REPORT INFORMATION
  Report Type: Spontaneous
  Country: US (occurrence: US)
  Receive Date: 20240131
  Receipt Date: 20240131
  Transmission Date: 20240409
  Serious: No
  Sender: FDA-Public Use
  Company Number: US-TEVA-VS-3140475

PATIENT
  Sex: Female

DRUGS (6)
  1. ERLOTINIB [Suspect]
     Active Substance: ERLOTINIB
     Indication: Olmsted syndrome
     Route: 048
  2. SIROLIMUS [Concomitant]
     Active Substance: SIROLIMUS
     Indication: Olmsted syndrome
     Route: 048
  3. TAZAROTENE [Concomitant]
     Active Substance: TAZAROTENE
     Indication: Olmsted syndrome
     Dosage: UP TO 0.1% GEL DAILY
     Route: 061
  4. ACITRETIN [Concomitant]
     Active Substance: ACITRETIN
     Indication: Olmsted syndrome
     Dosage: INCREASED
     Route: 065
  5. ACITRETIN [Concomitant]
     Active Substance: ACITRETIN
     Indication: Olmsted syndrome
     Route: 065
  6. ACITRETIN [Concomitant]
     Active Substance: ACITRETIN
     Indication: Olmsted syndrome
     Route: 065

REACTIONS (1)
  - Dermatitis acneiform [Unknown]
